FAERS Safety Report 11544420 (Version 1)
Quarter: 2015Q3

REPORT INFORMATION
  Report Type: Spontaneous
  Country: US (occurrence: None)
  Receive Date: 20150923
  Receipt Date: 20150923
  Transmission Date: 20151125
  Serious: Yes (Other)
  Sender: FDA-Public Use
  Company Number: None

PATIENT
  Age: 30 Year
  Sex: Female
  Weight: 94.8 kg

DRUGS (1)
  1. SULFAMETHOXAZOLEAND TRIMETHOPRIM 800 MG/160MG AMNEAL PHARM. OF NY [Suspect]
     Active Substance: SULFAMETHOXAZOLE\TRIMETHOPRIM
     Indication: BACTERIAL INFECTION
     Dosage: TAKEN BY MOUTH
     Route: 048
     Dates: start: 20150827, end: 20150901

REACTIONS (4)
  - Pruritus [None]
  - Skin discolouration [None]
  - Hypersensitivity [None]
  - Skin lesion [None]

NARRATIVE: CASE EVENT DATE: 20150901
